FAERS Safety Report 8036115-9 (Version None)
Quarter: 2011Q4

REPORT INFORMATION
  Report Type: 
  Country: None (occurrence: None)
  Receive Date: 20111202
  Receipt Date: 20110804
  Transmission Date: 20120403
  Serious: No
  Sender: FDA-Public Use
  Company Number: PHEH2011US01140

PATIENT

DRUGS (1)
  1. FANAPT [Suspect]
     Dosage: 1-2 MG, BID, ORAL
     Route: 048

REACTIONS (3)
  - VOMITING [None]
  - NAUSEA [None]
  - CHEST DISCOMFORT [None]
